FAERS Safety Report 9863788 (Version 1)
Quarter: 2014Q1

REPORT INFORMATION
  Report Type: Spontaneous
  Country: JP (occurrence: JP)
  Receive Date: 20140203
  Receipt Date: 20140203
  Transmission Date: 20141002
  Serious: Yes (Death)
  Sender: FDA-Public Use
  Company Number: JP-PFIZER INC-2014027651

PATIENT
  Age: 71 Year
  Sex: Female

DRUGS (3)
  1. METHYLPREDNISOLONE [Suspect]
     Indication: BEHCET^S SYNDROME
     Dosage: 500 MG, DAILY
  2. PREDNISOLONE [Suspect]
     Indication: BEHCET^S SYNDROME
     Dosage: UNK
  3. COLCHICINE [Concomitant]
     Dosage: 1 MG, 2X/DAY

REACTIONS (2)
  - Behcet^s syndrome [Fatal]
  - Septic shock [Fatal]
